FAERS Safety Report 14836282 (Version 1)
Quarter: 2018Q2

REPORT INFORMATION
  Report Type: Spontaneous
  Country: FR (occurrence: FR)
  Receive Date: 20180502
  Receipt Date: 20180502
  Transmission Date: 20180711
  Serious: Yes (Other)
  Sender: FDA-Public Use
  Company Number: FR-MERCK KGAA-2046966

PATIENT
  Age: 40 Year
  Sex: Female

DRUGS (4)
  1. NOVOTHYROX [Suspect]
     Active Substance: LEVOTHYROXINE SODIUM
     Indication: PRODUCT USED FOR UNKNOWN INDICATION
     Dates: start: 2017
  2. NOVOTHYROX [Suspect]
     Active Substance: LEVOTHYROXINE SODIUM
  3. NOVOTHYROX [Suspect]
     Active Substance: LEVOTHYROXINE SODIUM
  4. NOVOTHYROX [Suspect]
     Active Substance: LEVOTHYROXINE SODIUM

REACTIONS (21)
  - Stress [None]
  - Depression [None]
  - Social avoidant behaviour [None]
  - Weight decreased [None]
  - Fatigue [None]
  - Blood thyroid stimulating hormone increased [None]
  - Asthenia [None]
  - Muscular weakness [None]
  - Alopecia [None]
  - Anxiety [None]
  - Personal relationship issue [None]
  - Suicidal ideation [None]
  - Irritability [None]
  - Crying [None]
  - Insomnia [None]
  - Vertigo [None]
  - Decreased interest [None]
  - Palpitations [None]
  - Headache [None]
  - Haematoma [None]
  - Muscle spasms [None]

NARRATIVE: CASE EVENT DATE: 20170912
